FAERS Safety Report 26179875 (Version 1)
Quarter: 2025Q4

REPORT INFORMATION
  Report Type: Spontaneous
  Country: KR (occurrence: KR)
  Receive Date: 20251219
  Receipt Date: 20251219
  Transmission Date: 20260118
  Serious: Yes (Other)
  Sender: MYLAN
  Company Number: KR-MYLANLABS-2025M1107523

PATIENT
  Age: 72 Year
  Sex: Female

DRUGS (4)
  1. CELEBREX [Suspect]
     Active Substance: CELECOXIB
     Indication: Uterine leiomyoma
     Dosage: 200 MILLIGRAM, QD (DAILY)
     Route: 061
     Dates: start: 20191126, end: 20191126
  2. CELEBREX [Suspect]
     Active Substance: CELECOXIB
     Dosage: 200 MILLIGRAM, QD (DAILY)
     Route: 048
     Dates: start: 20191126, end: 20191126
  3. CELEBREX [Suspect]
     Active Substance: CELECOXIB
     Dosage: 200 MILLIGRAM, QD (DAILY)
     Route: 048
     Dates: start: 20191126, end: 20191126
  4. CELEBREX [Suspect]
     Active Substance: CELECOXIB
     Dosage: 200 MILLIGRAM, QD (DAILY)
     Route: 061
     Dates: start: 20191126, end: 20191126

REACTIONS (2)
  - Pneumonia [Recovered/Resolved]
  - Product use in unapproved indication [Unknown]

NARRATIVE: CASE EVENT DATE: 20191126
